FAERS Safety Report 5640347-4 (Version None)
Quarter: 2008Q1

REPORT INFORMATION
  Report Type: 
  Country: None (occurrence: None)
  Receive Date: 20080227
  Receipt Date: 20080107
  Transmission Date: 20080703
  Serious: No
  Sender: FDA-Public Use
  Company Number: US-BAXTER-2008BH000231

PATIENT
  Age: 46 Year
  Sex: Female
  Weight: 94 kg

DRUGS (3)
  1. HEPARIN SODIUM [Suspect]
     Indication: THROMBOSIS PROPHYLAXIS
     Route: 058
     Dates: start: 20071230
  2. HEPARIN SODIUM [Suspect]
     Route: 065
     Dates: start: 20080103
  3. HEPARIN SODIUM [Suspect]
     Route: 065
     Dates: start: 20080103, end: 20080103

REACTIONS (2)
  - HEADACHE [None]
  - MALAISE [None]
